FAERS Safety Report 17254768 (Version 1)
Quarter: 2020Q1

REPORT INFORMATION
  Report Type: Spontaneous
  Country: US (occurrence: US)
  Receive Date: 20200109
  Receipt Date: 20200109
  Transmission Date: 20200409
  Serious: No
  Sender: FDA-Public Use
  Company Number: US-GALDERMA-US19037694

PATIENT
  Age: 19 Year
  Sex: Female

DRUGS (2)
  1. PROACTIV?MD DEEP CLEANSING FACE?WASH [Concomitant]
     Indication: ACNE
     Route: 061
     Dates: start: 20190606, end: 20190610
  2. PROACTIV MD ADAPALENE ACNE TREATMENT [Suspect]
     Active Substance: ADAPALENE
     Indication: ACNE
     Dosage: 0.1%
     Route: 061
     Dates: start: 20190606, end: 20190610

REACTIONS (3)
  - Skin burning sensation [Not Recovered/Not Resolved]
  - Hypersensitivity [Not Recovered/Not Resolved]
  - Pruritus [Not Recovered/Not Resolved]

NARRATIVE: CASE EVENT DATE: 20190608
